FAERS Safety Report 23699157 (Version 1)
Quarter: 2024Q2

REPORT INFORMATION
  Report Type: Spontaneous
  Country: US (occurrence: US)
  Receive Date: 20240402
  Receipt Date: 20240402
  Transmission Date: 20240715
  Serious: Yes (Hospitalization, Disabling)
  Sender: FDA-Public Use
  Company Number: US-TEVA-VS-3164317

PATIENT
  Sex: Male

DRUGS (2)
  1. CLONAZEPAM [Suspect]
     Active Substance: CLONAZEPAM
     Dosage: MORNING
     Route: 065
  2. CLONAZEPAM [Suspect]
     Active Substance: CLONAZEPAM
     Dosage: MORNING AND EVENING
     Route: 065

REACTIONS (6)
  - Hospitalisation [Unknown]
  - Drug screen negative [Unknown]
  - Post-traumatic stress disorder [Unknown]
  - Drug screen negative [Unknown]
  - Disability [Unknown]
  - Drug withdrawal syndrome [Unknown]
